FAERS Safety Report 9164324 (Version 1)
Quarter: 2013Q1

REPORT INFORMATION
  Report Type: Spontaneous
  Country: US (occurrence: None)
  Receive Date: 20130221
  Receipt Date: 20130221
  Transmission Date: 20140127
  Serious: Yes (Life-Threatening, Hospitalization)
  Sender: FDA-Public Use
  Company Number: PR-AE13-000139

PATIENT
  Sex: Male

DRUGS (1)
  1. BC [Suspect]
     Indication: ANALGESIC THERAPY
     Dosage: 1-2 POWDERS/DAY, ORALLY?
     Route: 048
     Dates: start: 2000, end: 20130130

REACTIONS (3)
  - Ulcer haemorrhage [None]
  - Coma [None]
  - Haemorrhage [None]
